FAERS Safety Report 25213709 (Version 1)
Quarter: 2025Q2

REPORT INFORMATION
  Report Type: Spontaneous
  Country: US (occurrence: None)
  Receive Date: 20250417
  Receipt Date: 20250417
  Transmission Date: 20250717
  Serious: No
  Sender: FDA-CTU
  Company Number: None

PATIENT
  Age: 40 Year
  Sex: Male

DRUGS (1)
  1. SEMAGLUTIDE [Suspect]
     Active Substance: SEMAGLUTIDE
     Indication: Obesity
     Route: 058
     Dates: start: 20241003, end: 20250217

REACTIONS (5)
  - Gastrointestinal haemorrhage [None]
  - Diarrhoea [None]
  - Vomiting [None]
  - Perirectal abscess [None]
  - Nausea [None]

NARRATIVE: CASE EVENT DATE: 20250217
